FAERS Safety Report 10663289 (Version 3)
Quarter: 2015Q3

REPORT INFORMATION
  Report Type: Report from Study
  Country: US (occurrence: US)
  Receive Date: 20141218
  Receipt Date: 20150819
  Transmission Date: 20151125
  Serious: No
  Sender: FDA-Public Use
  Company Number: US-GILEAD-2014-0128156

PATIENT
  Age: 67 Year
  Sex: Female

DRUGS (2)
  1. AMBRISENTAN [Suspect]
     Active Substance: AMBRISENTAN
     Indication: PULMONARY HYPERTENSION
  2. AMBRISENTAN [Suspect]
     Active Substance: AMBRISENTAN
     Indication: CARDIAC DISORDER
     Dosage: 10 MG, QD
     Route: 065
     Dates: start: 20110826

REACTIONS (7)
  - Syncope [Unknown]
  - Tinnitus [Unknown]
  - Oedema peripheral [Unknown]
  - Chest pain [Unknown]
  - Tachycardia [Unknown]
  - Dyspnoea [Unknown]
  - Neck injury [Unknown]

NARRATIVE: CASE EVENT DATE: 201412
